FAERS Safety Report 6850455-8 (Version None)
Quarter: 2010Q3

REPORT INFORMATION
  Report Type: 
  Country: None (occurrence: None)
  Receive Date: 20100716
  Receipt Date: 20081028
  Transmission Date: 20110219
  Serious: No
  Sender: FDA-Public Use
  Company Number: US-PFIZER INC-2007087766

PATIENT
  Sex: Female
  Weight: 67.13 kg

DRUGS (4)
  1. CHANTIX [Suspect]
     Indication: SMOKING CESSATION THERAPY
     Dates: start: 20070901
  2. AMLODIPINE [Concomitant]
     Indication: HYPERTENSION
  3. TRIAMTERENE [Concomitant]
  4. VITAMINS [Concomitant]

REACTIONS (2)
  - ABDOMINAL DISCOMFORT [None]
  - INSOMNIA [None]
